FAERS Safety Report 9097915 (Version 2)
Quarter: 2013Q1

REPORT INFORMATION
  Report Type: Spontaneous
  Country: LV (occurrence: LV)
  Receive Date: 20130212
  Receipt Date: 20130222
  Transmission Date: 20140127
  Serious: Yes (Hospitalization, Other)
  Sender: FDA-Public Use
  Company Number: LV-BRISTOL-MYERS SQUIBB COMPANY-17366170

PATIENT
  Age: 59 Year
  Sex: Female

DRUGS (2)
  1. METFORMIN HCL [Suspect]
     Indication: DIABETES MELLITUS
     Dosage: 2000MG: 07JUN07-28SEP09?2000MG: 29SEP09-ONG
     Route: 048
     Dates: start: 20090607
  2. LEVOTHYROXINE [Concomitant]
     Route: 048
     Dates: start: 20070106

REACTIONS (1)
  - Enterocolitis [Recovered/Resolved]
